FAERS Safety Report 7055648-5 (Version None)
Quarter: 2010Q4

REPORT INFORMATION
  Report Type: 
  Country: None (occurrence: None)
  Receive Date: 20101021
  Receipt Date: 20101019
  Transmission Date: 20110411
  Serious: Yes (Hospitalization)
  Sender: FDA-Public Use
  Company Number: US-BRISTOL-MYERS SQUIBB COMPANY-15342074

PATIENT
  Age: 23 Year
  Sex: Male

DRUGS (3)
  1. ABILIFY [Suspect]
     Dates: start: 20091101
  2. HALDOL [Concomitant]
  3. RISPERIDONE [Concomitant]

REACTIONS (1)
  - SCHIZOPHRENIA [None]
